FAERS Safety Report 5091484-7 (Version None)
Quarter: 2006Q3

REPORT INFORMATION
  Report Type: 
  Country: None (occurrence: None)
  Receive Date: 20060829
  Receipt Date: 20060822
  Transmission Date: 20061208
  Serious: Yes (Other)
  Sender: FDA-Public Use
  Company Number: KR-GLAXOSMITHKLINE-B0435853A

PATIENT
  Age: 49 Year
  Sex: Male

DRUGS (1)
  1. VALTREX [Suspect]
     Dosage: 1000MG PER DAY
     Route: 048
     Dates: start: 20060819, end: 20060819

REACTIONS (2)
  - ABASIA [None]
  - MONOPLEGIA [None]
